FAERS Safety Report 10142806 (Version 2)
Quarter: 2014Q2

REPORT INFORMATION
  Report Type: Spontaneous
  Country: JP (occurrence: None)
  Receive Date: 20140428
  Receipt Date: 20140609
  Transmission Date: 20141212
  Serious: Yes (Death, Hospitalization)
  Sender: FDA-Public Use
  Company Number: SYM-2014-20033

PATIENT
  Age: 72 Year
  Sex: Female
  Weight: 41 kg

DRUGS (7)
  1. CHOREAZINE [Suspect]
     Indication: HUNTINGTON^S DISEASE
     Route: 048
     Dates: start: 20131022, end: 20140326
  2. SERENACE (HALOPERIDOL) (HALOPERIDOL) [Concomitant]
  3. TRYPTANOL (AMITRIPTYLINE HYDROCHLORIDE) (AMITRIPTYLINE HYDROCHLORIDE) [Concomitant]
  4. SOLDEM 3A (CARBOHYDRATES NOS W/POTASSIUM CHLORIDE/SODIUM) (SODIUM LACTATE, POTASSIUM CHLORIDE, SODIUM CHLORIDE, CARBOHYDRATES NOS) [Concomitant]
  5. BFLUID (AMINO ACIDS NOS W/ELECTROLYTES NOS/GLUCOSE/TH) (GLUCOSE, THIAMINE HYDROCHLORIDE, AMINO ACIDS NOS, ELECTROLYTES NOS) [Concomitant]
  6. ROZECLART (CETRAXATE HYROCHLORIDE) (CETRAXATE HYDROCHLORIDE) [Concomitant]
  7. SODIUM CHLORIDE (SODIUM CHLORIDE) [Concomitant]

REACTIONS (3)
  - Pneumonia aspiration [None]
  - Pyrexia [None]
  - Asphyxia [None]
